FAERS Safety Report 4347249-4 (Version None)
Quarter: 2004Q1

REPORT INFORMATION
  Report Type: 
  Country: None (occurrence: None)
  Receive Date: 20040325
  Receipt Date: 20040128
  Transmission Date: 20041129
  Serious: No
  Sender: FDA-Public Use
  Company Number: USA040157890

PATIENT
  Age: 72 Year
  Sex: Female

DRUGS (7)
  1. FORTEO [Suspect]
     Indication: OSTEOPOROSIS
     Dates: start: 20040105
  2. ZOCOR [Concomitant]
  3. VITAMIN E [Concomitant]
  4. VITAMIN B-12 [Concomitant]
  5. VITAMIN B6 [Concomitant]
  6. OS-CAL [Concomitant]
  7. COUMADIN [Concomitant]

REACTIONS (11)
  - ABDOMINAL DISCOMFORT [None]
  - ANGINA PECTORIS [None]
  - DYSPEPSIA [None]
  - DYSPNOEA [None]
  - FEELING ABNORMAL [None]
  - HEART RATE INCREASED [None]
  - INJECTION SITE BURNING [None]
  - INJECTION SITE HAEMORRHAGE [None]
  - LOOSE STOOLS [None]
  - NAUSEA [None]
  - VOMITING [None]
